FAERS Safety Report 23470960 (Version 1)
Quarter: 2024Q1

REPORT INFORMATION
  Report Type: Report from Study
  Country: CA (occurrence: CA)
  Receive Date: 20240202
  Receipt Date: 20240202
  Transmission Date: 20240410
  Serious: Yes (Death, Other)
  Sender: FDA-Public Use
  Company Number: CA-OTSUKA-2023_027681

PATIENT
  Age: 49 Year
  Sex: Male

DRUGS (1)
  1. ARIPIPRAZOLE [Suspect]
     Active Substance: ARIPIPRAZOLE
     Indication: Product used for unknown indication
     Dosage: 400 MG (EVERY 4 WEEKS)
     Route: 030

REACTIONS (1)
  - Death [Fatal]

NARRATIVE: CASE EVENT DATE: 20231228
